FAERS Safety Report 9012374 (Version 2)
Quarter: 2013Q1

REPORT INFORMATION
  Report Type: Report from Study
  Country: US (occurrence: US)
  Receive Date: 20130114
  Receipt Date: 20130222
  Transmission Date: 20140127
  Serious: Yes (Hospitalization)
  Sender: FDA-Public Use
  Company Number: US-PFIZER INC-2013005769

PATIENT
  Age: 51 Year
  Sex: Male

DRUGS (12)
  1. CARBOPLATIN [Suspect]
     Indication: HEAD AND NECK CANCER
     Dosage: UNK
     Dates: start: 20120112, end: 20121220
  2. CARBOPLATIN [Suspect]
     Indication: MALIGNANT NEOPLASM OF EYE
  3. CARBOPLATIN [Suspect]
     Indication: EAR NEOPLASM MALIGNANT
  4. CARBOPLATIN [Suspect]
     Indication: THROAT CANCER
  5. TEMSIROLIMUS [Suspect]
     Indication: HEAD AND NECK CANCER
     Dosage: UNK
     Dates: start: 20120112, end: 20121220
  6. TEMSIROLIMUS [Suspect]
     Indication: MALIGNANT NEOPLASM OF EYE
  7. TEMSIROLIMUS [Suspect]
     Indication: EAR NEOPLASM MALIGNANT
  8. TEMSIROLIMUS [Suspect]
     Indication: THROAT CANCER
  9. TAXOL [Suspect]
     Indication: HEAD AND NECK CANCER
     Dosage: UNK
     Dates: start: 20120112, end: 20121220
  10. TAXOL [Suspect]
     Indication: MALIGNANT NEOPLASM OF EYE
  11. TAXOL [Suspect]
     Indication: EAR NEOPLASM MALIGNANT
  12. TAXOL [Suspect]
     Indication: THROAT CANCER

REACTIONS (1)
  - Pyrexia [Recovered/Resolved]
